FAERS Safety Report 9319262 (Version 2)
Quarter: 2013Q3

REPORT INFORMATION
  Report Type: Spontaneous
  Country: GR (occurrence: GR)
  Receive Date: 20130530
  Receipt Date: 20130814
  Transmission Date: 20140515
  Serious: Yes (Other)
  Sender: FDA-Public Use
  Company Number: GR-ABBOTT-13X-066-1096741-00

PATIENT
  Age: 24 Year
  Sex: Male

DRUGS (4)
  1. DEPAKINE CHRONOSPHERE [Suspect]
     Indication: PRODUCT USED FOR UNKNOWN INDICATION
     Dosage: SACHETS; DAILY DOSE: 500MG
     Route: 048
  2. DEPAKINE CHRONOSPHERE [Suspect]
     Route: 048
  3. DEPAKINE CHRONOSPHERE [Suspect]
     Route: 048
  4. THYROXINE SODIUM [Concomitant]
     Indication: PRODUCT USED FOR UNKNOWN INDICATION

REACTIONS (2)
  - Epilepsy [Recovered/Resolved]
  - Dysphagia [Unknown]
